FAERS Safety Report 16332691 (Version 3)
Quarter: 2019Q3

REPORT INFORMATION
  Report Type: Spontaneous
  Country: US (occurrence: US)
  Receive Date: 20190520
  Receipt Date: 20190715
  Transmission Date: 20191004
  Serious: No
  Sender: FDA-Public Use
  Company Number: US-PFIZER INC-2019208027

PATIENT
  Age: 62 Year
  Sex: Female

DRUGS (1)
  1. XELJANZ [Suspect]
     Active Substance: TOFACITINIB CITRATE
     Indication: PSORIATIC ARTHROPATHY
     Dosage: 5 MG, 2X/DAY
     Route: 048
     Dates: start: 20181220, end: 201903

REACTIONS (4)
  - Palpitations [Recovered/Resolved]
  - Cardiac disorder [Unknown]
  - Drug intolerance [Unknown]
  - Disease recurrence [Recovered/Resolved]

NARRATIVE: CASE EVENT DATE: 2018
